FAERS Safety Report 6496418-6 (Version None)
Quarter: 2009Q4

REPORT INFORMATION
  Report Type: 
  Country: None (occurrence: None)
  Receive Date: 20091209
  Receipt Date: 20091124
  Transmission Date: 20100525
  Serious: Yes (Hospitalization)
  Sender: FDA-Public Use
  Company Number: 2009003289

PATIENT

DRUGS (2)
  1. ERLOTINIB HYDROCHLORIDE [Suspect]
     Indication: COLORECTAL CANCER METASTATIC
     Dosage: (QD),ORAL
     Route: 048
     Dates: start: 20090908
  2. BEVACIZUMAB [Suspect]
     Indication: COLORECTAL CANCER METASTATIC
     Dates: start: 20090908

REACTIONS (10)
  - ANAEMIA [None]
  - DIARRHOEA [None]
  - EPISTAXIS [None]
  - FATIGUE [None]
  - LEUKOPENIA [None]
  - MUCOSAL HAEMORRHAGE [None]
  - NAUSEA [None]
  - SUBILEUS [None]
  - THROMBOCYTOPENIA [None]
  - VOMITING [None]
